FAERS Safety Report 25013913 (Version 1)
Quarter: 2025Q1

REPORT INFORMATION
  Report Type: Spontaneous
  Country: FR (occurrence: FR)
  Receive Date: 20250226
  Receipt Date: 20250226
  Transmission Date: 20250409
  Serious: Yes (Other)
  Sender: AUROBINDO
  Company Number: FR-MLMSERVICE-20250205-PI395722-00260-1

PATIENT
  Age: 90 Year
  Sex: Female

DRUGS (1)
  1. PERINDOPRIL [Suspect]
     Active Substance: PERINDOPRIL
     Indication: Hypertension
     Route: 065
     Dates: start: 201908, end: 2019

REACTIONS (3)
  - Colitis microscopic [Recovered/Resolved]
  - Hypokalaemia [Unknown]
  - Diarrhoea [Unknown]

NARRATIVE: CASE EVENT DATE: 20190101
